FAERS Safety Report 11058880 (Version 1)
Quarter: 2015Q2

REPORT INFORMATION
  Report Type: Spontaneous
  Country: US (occurrence: US)
  Receive Date: 20150423
  Receipt Date: 20150423
  Transmission Date: 20150821
  Serious: Yes (Other)
  Sender: FDA-Public Use
  Company Number: US-ASTELLAS-2015US012290

PATIENT
  Age: 86 Year
  Sex: Female

DRUGS (1)
  1. VESICARE [Suspect]
     Active Substance: SOLIFENACIN SUCCINATE
     Indication: PRODUCT USED FOR UNKNOWN INDICATION
     Dosage: UNK, UNKNOWN FREQ.
     Route: 065

REACTIONS (11)
  - Back injury [Unknown]
  - Fall [Unknown]
  - Laceration [Unknown]
  - Memory impairment [Unknown]
  - Confusional state [Unknown]
  - Staphylococcal infection [Unknown]
  - Constipation [Unknown]
  - Dizziness [Unknown]
  - Vertigo [Unknown]
  - Skull fracture [Unknown]
  - Fatigue [Unknown]
